FAERS Safety Report 26127425 (Version 1)
Quarter: 2025Q4

REPORT INFORMATION
  Report Type: Spontaneous
  Country: TW (occurrence: TW)
  Receive Date: 20251205
  Receipt Date: 20251205
  Transmission Date: 20260117
  Serious: Yes (Hospitalization)
  Sender: MERCK SHARP & DOHME LLC
  Company Number: TW-009507513-2356378

PATIENT
  Age: 73 Year
  Sex: Female
  Weight: 56.2 kg

DRUGS (10)
  1. PEMBROLIZUMAB [Suspect]
     Active Substance: PEMBROLIZUMAB
     Indication: Squamous cell carcinoma
     Route: 041
     Dates: start: 20250701, end: 20250701
  2. IMOLEX [Concomitant]
     Dates: start: 20250624, end: 20250627
  3. WEIMOK [Concomitant]
     Route: 048
  4. NOVAMIN [Concomitant]
     Route: 048
     Dates: start: 20250624, end: 20250701
  5. ACETAL [Concomitant]
     Route: 048
     Dates: start: 20250625, end: 20250709
  6. LENVATINIB [Concomitant]
     Active Substance: LENVATINIB
     Route: 048
     Dates: start: 20250708, end: 20250714
  7. MINOLINE [Concomitant]
     Route: 048
     Dates: start: 20250616, end: 20250722
  8. GILOTRIF [Concomitant]
     Active Substance: AFATINIB
     Route: 048
     Dates: start: 20250612, end: 20250711
  9. BEVACIZUMAB [Concomitant]
     Active Substance: BEVACIZUMAB
     Route: 041
     Dates: start: 20250701, end: 20250701
  10. INDOY [Concomitant]
     Route: 048

REACTIONS (2)
  - Mucocutaneous rash [Recovered/Resolved]
  - Stevens-Johnson syndrome [Recovered/Resolved]

NARRATIVE: CASE EVENT DATE: 20250704
